FAERS Safety Report 8366474-9 (Version None)
Quarter: 2012Q2

REPORT INFORMATION
  Report Type: 
  Country: None (occurrence: None)
  Receive Date: 20120517
  Receipt Date: 20120510
  Transmission Date: 20120825
  Serious: Yes (Hospitalization, Other)
  Sender: FDA-Public Use
  Company Number: ES-UCBSA-055714

PATIENT
  Age: 33 Year
  Sex: Female

DRUGS (4)
  1. AZATHIOPRINE [Concomitant]
     Indication: CROHN'S DISEASE
     Dosage: UNKNOWN DOSE
  2. MESALAMINE [Concomitant]
     Indication: CROHN'S DISEASE
     Dosage: UNKNOWN DOSE
  3. CIMZIA [Suspect]
     Indication: CROHN'S DISEASE
     Dosage: DOSE: 400 MG
     Route: 058
     Dates: start: 20120209
  4. CORTICOIDS [Concomitant]
     Indication: CROHN'S DISEASE
     Dosage: UNKNOWN DOSE

REACTIONS (1)
  - MENINGITIS ASEPTIC [None]
